FAERS Safety Report 14453272 (Version 1)
Quarter: 2018Q1

REPORT INFORMATION
  Report Type: Report from Study
  Country: US (occurrence: US)
  Receive Date: 20180129
  Receipt Date: 20180129
  Transmission Date: 20180509
  Serious: Yes (Other)
  Sender: FDA-Public Use
  Company Number: US-BAYER-2017-249067

PATIENT
  Age: 50 Year
  Sex: Male
  Weight: 95.24 kg

DRUGS (19)
  1. TESTOSTERON [Concomitant]
     Active Substance: TESTOSTERONE
  2. RANITIDINE. [Concomitant]
     Active Substance: RANITIDINE
  3. DEXTROAMPHETAMINE. [Concomitant]
     Active Substance: DEXTROAMPHETAMINE
  4. ZIPRASIDONE. [Concomitant]
     Active Substance: ZIPRASIDONE
  5. CEFUROXIME. [Concomitant]
     Active Substance: CEFUROXIME
  6. OXYCODONE [Concomitant]
     Active Substance: OXYCODONE
  7. SERTRALINE [Concomitant]
     Active Substance: SERTRALINE HYDROCHLORIDE
  8. STIVARGA [Suspect]
     Active Substance: REGORAFENIB
     Indication: COLON CANCER
     Dosage: 120 MG, DAILY, 21 DAYS ON 7 OFF
     Route: 048
  9. AMLODIPINE [Concomitant]
     Active Substance: AMLODIPINE BESYLATE
  10. STIVARGA [Suspect]
     Active Substance: REGORAFENIB
     Indication: COLON CANCER
     Dosage: 160 MG, DAILY FOR 3 WEEKS
     Route: 048
     Dates: start: 20171201
  11. PREDNISONE. [Concomitant]
     Active Substance: PREDNISONE
  12. LIDOCAINE/PRILOCAINE [LIDOCAINE,PRILOCAINE] [Concomitant]
  13. FILGRASTIM [Concomitant]
     Active Substance: FILGRASTIM
  14. VITAMIN B12 [Concomitant]
     Active Substance: CYANOCOBALAMIN
  15. VITAMIN D3 [Concomitant]
     Active Substance: CHOLECALCIFEROL
  16. HYDROMORPHONE [Concomitant]
     Active Substance: HYDROMORPHONE
  17. VITAMIN C [Concomitant]
     Active Substance: ASCORBIC ACID
  18. CYCLOBENZAPRINE. [Concomitant]
     Active Substance: CYCLOBENZAPRINE
  19. LORAZEPAM. [Concomitant]
     Active Substance: LORAZEPAM

REACTIONS (5)
  - Palmar-plantar erythrodysaesthesia syndrome [Unknown]
  - Bedridden [Unknown]
  - Nausea [None]
  - Vomiting [None]
  - Drug dose omission [None]

NARRATIVE: CASE EVENT DATE: 20171206
